FAERS Safety Report 5480362-7 (Version None)
Quarter: 2007Q4

REPORT INFORMATION
  Report Type: 
  Country: None (occurrence: None)
  Receive Date: 20071009
  Receipt Date: 20071004
  Transmission Date: 20080405
  Serious: Yes (Other)
  Sender: FDA-Public Use
  Company Number: US-ASTRAZENECA-2007UW23107

PATIENT
  Age: 32 Year
  Sex: Female

DRUGS (3)
  1. TAMOXIFEN CITRATE [Suspect]
     Route: 048
     Dates: start: 20061014, end: 20061211
  2. TRIPTORELIN PAMOATE [Suspect]
     Dates: start: 20040324, end: 20061129
  3. PROZAC [Concomitant]

REACTIONS (1)
  - HEPATIC STEATOSIS [None]
